FAERS Safety Report 25406659 (Version 1)
Quarter: 2025Q2

REPORT INFORMATION
  Report Type: Spontaneous
  Country: BE (occurrence: BE)
  Receive Date: 20250606
  Receipt Date: 20250606
  Transmission Date: 20250717
  Serious: Yes (Hospitalization, Other)
  Sender: CHEPLAPHARM
  Company Number: BE-CHEPLA-2025006962

PATIENT
  Age: 39 Week

DRUGS (9)
  1. GANCICLOVIR [Suspect]
     Active Substance: GANCICLOVIR
     Indication: Cytomegalovirus infection
     Dosage: FROM DAY 71 UNTIL DAY 83 AFTER BIRTH; 5 MG/KG 2X/DAY?DAILY DOSE: 10 MILLIGRAM/KG
  2. GANCICLOVIR [Suspect]
     Active Substance: GANCICLOVIR
     Indication: Cytomegalovirus infection
     Dosage: 4.5 MG/KG 2X/DAY ?DAILY DOSE: 9 MILLIGRAM/KG
  3. GANCICLOVIR [Suspect]
     Active Substance: GANCICLOVIR
     Indication: Cytomegalovirus infection
     Dosage: 5.1 MG/KG 2X/DAY ?DAILY DOSE: 10.2 MILLIGRAM/KG
  4. GANCICLOVIR [Suspect]
     Active Substance: GANCICLOVIR
     Indication: Cytomegalovirus infection
     Dosage: REINSTATED ON DAY 167 AT A REDUCED DOSE (2.8 MG/KG 2?/DAY)?DAILY DOSE: 5.6 MILLIGRAM/KG
  5. FOSCARNET [Suspect]
     Active Substance: FOSCARNET
     Indication: Cytomegalovirus infection
     Dosage: 87 MG/KG 2X/DAY TO 97 MG/KG 2X/DAY
  6. FOSCARNET [Suspect]
     Active Substance: FOSCARNET
     Indication: Cytomegalovirus infection
     Dosage: 82 MG/KG 2X/DAY?DAILY DOSE: 164 MILLIGRAM/KG
  7. FOSCARNET [Suspect]
     Active Substance: FOSCARNET
     Indication: Cytomegalovirus infection
     Dosage: LATER 89 MG/KG 2X/DAY FROM DAY 117 AFTER BIRTH?DAILY DOSE: 178 MILLIGRAM/KG
  8. FOSCARNET [Suspect]
     Active Substance: FOSCARNET
     Indication: Cytomegalovirus infection
     Dosage: CONTINUED AT A DOSE OF 90 MG/KG 2X/DAY?DAILY DOSE: 180 MILLIGRAM/KG
  9. SULFAMETHOXAZOLE\TRIMETHOPRIM [Concomitant]
     Active Substance: SULFAMETHOXAZOLE\TRIMETHOPRIM
     Indication: Stem cell transplant

REACTIONS (5)
  - Neutropenia [Unknown]
  - Leukopenia [Unknown]
  - Transplant failure [Unknown]
  - Drug resistance [Unknown]
  - Off label use [Recovered/Resolved]
